FAERS Safety Report 8158896-6 (Version None)
Quarter: 2012Q1

REPORT INFORMATION
  Report Type: 
  Country: None (occurrence: None)
  Receive Date: 20120223
  Receipt Date: 20120221
  Transmission Date: 20120608
  Serious: Yes (Death, Life-Threatening, Hospitalization)
  Sender: FDA-Public Use
  Company Number: NL-BRISTOL-MYERS SQUIBB COMPANY-16193443

PATIENT
  Age: 64 Year
  Sex: Male

DRUGS (9)
  1. BLINDED: SAXAGLIPTIN [Suspect]
     Indication: TYPE 2 DIABETES MELLITUS
     Dates: start: 20101028, end: 20110928
  2. METFORMIN HCL [Suspect]
     Indication: TYPE 2 DIABETES MELLITUS
  3. BLINDED: PLACEBO [Suspect]
     Indication: TYPE 2 DIABETES MELLITUS
     Dates: start: 20101028, end: 20110928
  4. AMOXICILLIN [Concomitant]
     Dates: start: 20110415, end: 20110422
  5. AMPHOTERICIN B [Concomitant]
     Dates: start: 20110711
  6. PREDNISONE [Concomitant]
     Dates: start: 20110415, end: 20110429
  7. LASIX [Concomitant]
     Dates: start: 20110919
  8. MORPHINE [Concomitant]
     Dates: start: 20110928
  9. MIDAZOLAM HCL [Concomitant]
     Dates: start: 20110928

REACTIONS (11)
  - VASCULAR OCCLUSION [None]
  - POST PROCEDURAL HAEMORRHAGE [None]
  - PNEUMONIA FUNGAL [None]
  - INTESTINAL ISCHAEMIA [None]
  - RESPIRATORY FAILURE [None]
  - CHRONIC OBSTRUCTIVE PULMONARY DISEASE [None]
  - PERIPHERAL ARTERIAL OCCLUSIVE DISEASE [None]
  - SEPSIS [None]
  - PYREXIA [None]
  - AORTIC ANEURYSM [None]
  - HYPOXIA [None]
